FAERS Safety Report 19586807 (Version 2)
Quarter: 2021Q3

REPORT INFORMATION
  Report Type: Report from Study
  Country: None (occurrence: US)
  Receive Date: 20210720
  Receipt Date: 20210824
  Transmission Date: 20211014
  Serious: Yes (Hospitalization, Other)
  Sender: FDA-Public Use
  Company Number: US-ABBVIE-21K-163-3996127-00

PATIENT
  Sex: Female
  Weight: 112.14 kg

DRUGS (1)
  1. SKYRIZI [Suspect]
     Active Substance: RISANKIZUMAB-RZAA
     Indication: PSORIASIS
     Route: 058
     Dates: start: 202005

REACTIONS (3)
  - Dehydration [Recovered/Resolved]
  - Hypoacusis [Unknown]
  - Fatigue [Unknown]

NARRATIVE: CASE EVENT DATE: 2021
